FAERS Safety Report 7420597-7 (Version None)
Quarter: 2011Q2

REPORT INFORMATION
  Report Type: 
  Country: None (occurrence: None)
  Receive Date: 20110407
  Receipt Date: 20110331
  Transmission Date: 20111010
  Serious: Yes (Other)
  Sender: FDA-Public Use
  Company Number: 11-000345

PATIENT
  Age: 39 Year
  Sex: Female
  Weight: 65.8 kg

DRUGS (4)
  1. NEXIUM [Concomitant]
  2. CYMBALTA [Concomitant]
  3. FEMRING [Suspect]
     Indication: HORMONE REPLACEMENT THERAPY
     Dosage: 0.05 MG CONTINUOUSLY FOR THREE MONTH, VAGINAL
     Route: 067
     Dates: start: 20070101
  4. BELLADONA (ATROPIA BELLADONNA EXTRACT) [Concomitant]

REACTIONS (9)
  - DRUG INEFFECTIVE [None]
  - NIGHT SWEATS [None]
  - HYDRONEPHROSIS [None]
  - HIATUS HERNIA [None]
  - CYSTITIS INTERSTITIAL [None]
  - GENITAL HERPES [None]
  - NAUSEA [None]
  - CONSTIPATION [None]
  - PAIN [None]
